FAERS Safety Report 19362773 (Version 4)
Quarter: 2023Q2

REPORT INFORMATION
  Report Type: Report from Study
  Country: US (occurrence: US)
  Receive Date: 20210602
  Receipt Date: 20230506
  Transmission Date: 20230722
  Serious: Yes (Other)
  Sender: FDA-Public Use
  Company Number: US-ABBVIE-21K-163-3924986-00

PATIENT
  Age: 62 Year
  Sex: Female

DRUGS (11)
  1. IBRUTINIB [Suspect]
     Active Substance: IBRUTINIB
     Indication: Product used for unknown indication
     Route: 048
     Dates: start: 20190809
  2. VENCLEXTA [Suspect]
     Active Substance: VENETOCLAX
     Indication: Extranodal marginal zone B-cell lymphoma (MALT type)
     Dosage: 10 MG, 50 MG, 100 MG TAB ORAL STARTER PACK?FORM STRENGTH-100 MG
     Route: 048
     Dates: start: 20190716
  3. VENCLEXTA [Suspect]
     Active Substance: VENETOCLAX
     Indication: Extranodal marginal zone B-cell lymphoma (MALT type)
     Dosage: TAKE 4 TABLET(S) EACH DAY WITH FOOD AND WATER; TAKE WHOLE TABLET, DO NOT BREAK OR CRUS
     Route: 048
  4. VENCLEXTA [Suspect]
     Active Substance: VENETOCLAX
     Indication: Extranodal marginal zone B-cell lymphoma (MALT type)
     Dosage: 10 MG, 50 MG, 100 MG TAB (ORAL STARTER PACK)
     Route: 048
  5. VITAMIN D [Concomitant]
     Active Substance: VITAMIN D NOS
     Indication: Product used for unknown indication
  6. VITAMIN D [Concomitant]
     Active Substance: VITAMIN D NOS
     Indication: Product used for unknown indication
  7. VITAMIN D [Concomitant]
     Active Substance: VITAMIN D NOS
     Indication: Product used for unknown indication
  8. ATENOLOL [Concomitant]
     Active Substance: ATENOLOL
     Indication: Product used for unknown indication
     Route: 048
  9. ATIVAN [Concomitant]
     Active Substance: LORAZEPAM
     Indication: Product used for unknown indication
  10. KLONOPIN [Concomitant]
     Active Substance: CLONAZEPAM
     Indication: Product used for unknown indication
     Route: 050
  11. VASOTEC [Concomitant]
     Active Substance: ENALAPRIL MALEATE
     Indication: Product used for unknown indication
     Route: 050

REACTIONS (6)
  - Skin lesion [Unknown]
  - Nodule [Unknown]
  - Intentional product use issue [Unknown]
  - Off label use [Unknown]
  - Diarrhoea [Unknown]
  - Fatigue [Unknown]

NARRATIVE: CASE EVENT DATE: 20191205
